FAERS Safety Report 19788371 (Version 1)
Quarter: 2021Q3

REPORT INFORMATION
  Report Type: Other
  Country: IN (occurrence: IN)
  Receive Date: 20210903
  Receipt Date: 20210903
  Transmission Date: 20211014
  Serious: Yes (Hospitalization)
  Sender: FDA-Public Use
  Company Number: IN-B.BRAUN MEDICAL INC.-2118001

PATIENT
  Age: 46 Year
  Sex: Female

DRUGS (2)
  1. DEXAMETHASONE. [Concomitant]
     Active Substance: DEXAMETHASONE
  2. 5% DEXTROSE INJECTION USP 0264?1510?31 0264?1510?32 0264?1510?36 (NDA [Suspect]
     Active Substance: DEXTROSE
     Indication: HYPOGLYCAEMIA

REACTIONS (1)
  - Drug ineffective [None]
